FAERS Safety Report 9027158 (Version 2)
Quarter: 2013Q1

REPORT INFORMATION
  Report Type: Spontaneous
  Country: CA (occurrence: CA)
  Receive Date: 20130123
  Receipt Date: 20130327
  Transmission Date: 20140127
  Serious: Yes (Other)
  Sender: FDA-Public Use
  Company Number: CA-GLAXOSMITHKLINE-A1004588A

PATIENT
  Age: 63 Year
  Sex: Male
  Weight: 80.4 kg

DRUGS (4)
  1. VOTRIENT [Suspect]
     Indication: RENAL CANCER METASTATIC
     Dosage: 800MG PER DAY
     Route: 048
     Dates: start: 20120822, end: 20130304
  2. LIPITOR [Concomitant]
  3. COZAAR [Concomitant]
  4. RANITIDINE [Concomitant]

REACTIONS (6)
  - Malignant neoplasm progression [Not Recovered/Not Resolved]
  - Fatigue [Recovered/Resolved]
  - Asthenia [Recovered/Resolved]
  - Hepatic enzyme increased [Recovered/Resolved]
  - Lip discolouration [Recovered/Resolved]
  - Decreased appetite [Unknown]
